FAERS Safety Report 10042645 (Version 1)
Quarter: 2014Q1

REPORT INFORMATION
  Report Type: Spontaneous
  Country: FR (occurrence: FR)
  Receive Date: 20140327
  Receipt Date: 20140327
  Transmission Date: 20141002
  Serious: Yes (Other)
  Sender: FDA-Public Use
  Company Number: FR-ROXANE LABORATORIES, INC.-2014-BI-12310GD

PATIENT
  Sex: Male

DRUGS (4)
  1. PREDNISONE [Suspect]
     Indication: SYSTEMIC LUPUS ERYTHEMATOSUS
     Dosage: NO MORE THAN 10 MG
     Route: 048
     Dates: start: 2003, end: 2008
  2. PREDNISONE [Suspect]
     Indication: POLYARTHRITIS
     Dosage: 10 MG
     Route: 065
     Dates: start: 201106
  3. HYDROXYCHLOROQUINE [Suspect]
     Indication: SYSTEMIC LUPUS ERYTHEMATOSUS
     Route: 065
     Dates: start: 2003
  4. HYDROXYCHLOROQUINE [Suspect]
     Indication: POLYARTHRITIS

REACTIONS (8)
  - Retinal detachment [Recovered/Resolved]
  - Visual impairment [Recovered/Resolved]
  - Retinal detachment [Recovered/Resolved]
  - Lupus nephritis [Recovered/Resolved]
  - Hypertension [Recovered/Resolved]
  - Haematuria [Recovered/Resolved]
  - Leukocyturia [Recovered/Resolved]
  - Lymphopenia [Recovered/Resolved]
